FAERS Safety Report 4688927-7 (Version None)
Quarter: 2005Q2

REPORT INFORMATION
  Report Type: 
  Country: None (occurrence: None)
  Receive Date: 20050613
  Receipt Date: 20050303
  Transmission Date: 20051028
  Serious: Yes (Death, Hospitalization)
  Sender: FDA-Public Use
  Company Number: JP-BRISTOL-MYERS SQUIBB COMPANY-12885778

PATIENT
  Age: 69 Year
  Sex: Male

DRUGS (10)
  1. ZERIT [Suspect]
     Indication: HIV INFECTION
     Route: 048
     Dates: start: 20020724, end: 20030827
  2. EFAVIRENZ [Suspect]
     Indication: HIV INFECTION
     Route: 048
     Dates: start: 20020724, end: 20030827
  3. EPIVIR [Suspect]
     Indication: HIV INFECTION
     Route: 048
     Dates: start: 20020724, end: 20030827
  4. KLARICID [Concomitant]
     Route: 048
     Dates: start: 20020806, end: 20030827
  5. BAKTAR [Concomitant]
     Route: 048
     Dates: start: 20020730, end: 20030825
  6. GASTER [Concomitant]
     Route: 048
     Dates: start: 20020611, end: 20030825
  7. RENIVACE [Concomitant]
     Route: 048
     Dates: start: 20020806, end: 20030827
  8. HARNAL [Concomitant]
     Route: 048
     Dates: start: 20020627, end: 20030827
  9. AMARYL [Concomitant]
     Route: 048
     Dates: start: 20030701, end: 20030827
  10. ALLOPURINOL [Concomitant]
     Dates: start: 20030819, end: 20030827

REACTIONS (3)
  - ACUTE MYOCARDIAL INFARCTION [None]
  - ANOREXIA [None]
  - GOUT [None]
